FAERS Safety Report 7619955-7 (Version None)
Quarter: 2011Q3

REPORT INFORMATION
  Report Type: 
  Country: None (occurrence: None)
  Receive Date: 20110719
  Receipt Date: 20110706
  Transmission Date: 20111222
  Serious: Yes (Other)
  Sender: FDA-Public Use
  Company Number: US-AMGEN-USASP2011034204

PATIENT
  Age: 47 Year
  Sex: Female

DRUGS (1)
  1. ENBREL [Suspect]
     Indication: PSORIATIC ARTHROPATHY
     Dosage: 50 MG, QWK
     Dates: start: 20070501

REACTIONS (8)
  - AMNESIA [None]
  - VISION BLURRED [None]
  - INJECTION SITE PAIN [None]
  - HYPOAESTHESIA [None]
  - NIGHT SWEATS [None]
  - FISTULA [None]
  - BRONCHITIS [None]
  - DYSPNOEA [None]
